FAERS Safety Report 14837553 (Version 3)
Quarter: 2018Q4

REPORT INFORMATION
  Report Type: Spontaneous
  Country: ES (occurrence: ES)
  Receive Date: 20180502
  Receipt Date: 20181112
  Transmission Date: 20190204
  Serious: Yes (Life-Threatening, Hospitalization, Other)
  Sender: FDA-Public Use
  Company Number: ES-MYLANLABS-2018M1027347

PATIENT
  Age: 72 Year
  Sex: Male

DRUGS (4)
  1. SINTROM [Concomitant]
     Active Substance: ACENOCOUMAROL
     Indication: PRODUCT USED FOR UNKNOWN INDICATION
     Dosage: UNK
     Route: 065
  2. METFORMIN [Suspect]
     Active Substance: METFORMIN HYDROCHLORIDE
     Indication: TYPE 2 DIABETES MELLITUS
     Dosage: 850 MG, Q8H
     Route: 065
  3. IRBESARTAN. [Concomitant]
     Active Substance: IRBESARTAN
     Indication: PRODUCT USED FOR UNKNOWN INDICATION
     Dosage: UNK
     Route: 065
  4. FUROSEMIDE. [Concomitant]
     Active Substance: FUROSEMIDE
     Indication: PRODUCT USED FOR UNKNOWN INDICATION
     Route: 065

REACTIONS (18)
  - Blood pH decreased [Recovering/Resolving]
  - Toxicity to various agents [Recovering/Resolving]
  - Body temperature decreased [Recovering/Resolving]
  - Blood creatinine increased [Recovering/Resolving]
  - Blood pressure decreased [Recovering/Resolving]
  - Pallor [Recovering/Resolving]
  - Depressed level of consciousness [Recovering/Resolving]
  - Blood urea increased [Recovering/Resolving]
  - Pulseless electrical activity [Recovering/Resolving]
  - Heart rate increased [Recovering/Resolving]
  - PCO2 decreased [Recovering/Resolving]
  - Shock [Recovering/Resolving]
  - Blood bicarbonate decreased [Recovering/Resolving]
  - Stupor [Recovering/Resolving]
  - Drug level increased [Recovering/Resolving]
  - Cardio-respiratory arrest [Recovering/Resolving]
  - Base excess decreased [Recovering/Resolving]
  - Lactic acidosis [Recovered/Resolved]
